FAERS Safety Report 4369042-9 (Version None)
Quarter: 2004Q2

REPORT INFORMATION
  Report Type: 
  Country: None (occurrence: None)
  Receive Date: 20040527
  Receipt Date: 20040514
  Transmission Date: 20050107
  Serious: Yes (Other)
  Sender: FDA-Public Use
  Company Number: 2004029227

PATIENT
  Age: 70 Year
  Sex: Female
  Weight: 65.7716 kg

DRUGS (4)
  1. LIPITOR [Suspect]
     Indication: BLOOD CHOLESTEROL INCREASED
     Dosage: 10 MG (1 IN 1 D), ORAL
     Route: 048
     Dates: start: 20030801
  2. LEVOTHYROXINE SODIUM [Concomitant]
  3. MULTIVITAMINS (ASCORBIC ACID, ERGOCALCIFEROL, FOLIC ACID, NICOTINAMIDE [Concomitant]
  4. CALCIUM (CALCIUM) [Concomitant]

REACTIONS (5)
  - ABDOMINAL DISTENSION [None]
  - ABDOMINAL PAIN LOWER [None]
  - ADHESION [None]
  - CYST [None]
  - GASTROINTESTINAL DISORDER [None]
